FAERS Safety Report 9377540 (Version 2)
Quarter: 2013Q3

REPORT INFORMATION
  Report Type: Spontaneous
  Country: US (occurrence: US)
  Receive Date: 20130701
  Receipt Date: 20130807
  Transmission Date: 20140515
  Serious: No
  Sender: FDA-Public Use
  Company Number: US-B.I. PHARMACEUTICALS,INC./RIDGEFIELD-2013-BI-18250BP

PATIENT
  Age: 85 Year
  Sex: Female

DRUGS (11)
  1. FERROUS SULFATE [Concomitant]
     Route: 048
  2. CALCIUM WITH VITAMIN D [Concomitant]
     Route: 048
  3. LISINOPRIL [Concomitant]
     Indication: HYPERTENSION
     Route: 048
  4. SPIRIVA [Suspect]
     Indication: CHRONIC OBSTRUCTIVE PULMONARY DISEASE
     Dosage: 18 MCG
     Route: 055
     Dates: start: 20130517
  5. PLAVIX [Concomitant]
     Route: 048
  6. MAGNESIUM [Concomitant]
     Route: 048
  7. LOVASTATIN [Concomitant]
     Indication: BLOOD CHOLESTEROL INCREASED
     Route: 048
  8. ZETIA [Concomitant]
     Indication: BLOOD CHOLESTEROL INCREASED
     Route: 048
  9. LORATADINE [Concomitant]
     Route: 048
  10. ALBUTEROL [Concomitant]
     Route: 055
  11. PAXIL [Concomitant]
     Route: 048

REACTIONS (5)
  - Tremor [Recovered/Resolved]
  - Ear discomfort [Recovered/Resolved]
  - Product quality issue [Recovered/Resolved]
  - Product quality issue [Recovered/Resolved]
  - Product quality issue [Recovered/Resolved]
